FAERS Safety Report 7747923-3 (Version None)
Quarter: 2011Q3

REPORT INFORMATION
  Report Type: 
  Country: None (occurrence: None)
  Receive Date: 20110913
  Receipt Date: 20110705
  Transmission Date: 20111222
  Serious: No
  Sender: FDA-Public Use
  Company Number: US-ALLERGAN-1108738US

PATIENT
  Age: 48 Year
  Sex: Female

DRUGS (2)
  1. EYELASH ENHANCER: LOREAL LASH BOOSTER [Suspect]
     Indication: MADAROSIS
     Dosage: UNK
  2. LATISSE [Suspect]
     Indication: MADAROSIS
     Dosage: 1 GTT, QHS
     Route: 061

REACTIONS (2)
  - WRONG TECHNIQUE IN DRUG USAGE PROCESS [None]
  - MADAROSIS [None]
